FAERS Safety Report 24466616 (Version 1)
Quarter: 2024Q4

REPORT INFORMATION
  Report Type: Report from Study
  Country: US (occurrence: US)
  Receive Date: 20241018
  Receipt Date: 20241018
  Transmission Date: 20250114
  Serious: No
  Sender: ROCHE
  Company Number: US-ROCHE-3547249

PATIENT
  Age: 39 Year
  Sex: Female
  Weight: 58.02 kg

DRUGS (6)
  1. XOLAIR [Suspect]
     Active Substance: OMALIZUMAB
     Indication: Idiopathic urticaria
     Route: 058
  2. XOLAIR [Suspect]
     Active Substance: OMALIZUMAB
     Indication: Asthma
  3. DIPHENHYDRAMINE [Concomitant]
     Active Substance: DIPHENHYDRAMINE
     Route: 065
  4. NUBAIN [Concomitant]
     Active Substance: NALBUPHINE HYDROCHLORIDE
     Route: 065
  5. FAMOTIDINE [Concomitant]
     Active Substance: FAMOTIDINE
     Route: 065
  6. SINGULAIR [Concomitant]
     Active Substance: MONTELUKAST SODIUM

REACTIONS (15)
  - Rhinitis allergic [Unknown]
  - NSAID exacerbated respiratory disease [Unknown]
  - Chronic sinusitis [Unknown]
  - Dermatitis atopic [Unknown]
  - Snoring [Unknown]
  - Asthma [Unknown]
  - Nasal congestion [Unknown]
  - Rhinorrhoea [Unknown]
  - Ear congestion [Unknown]
  - Ear discomfort [Unknown]
  - Ear disorder [Unknown]
  - Ear pruritus [Unknown]
  - Dry skin [Unknown]
  - Sleep apnoea syndrome [Unknown]
  - Conjunctivitis allergic [Unknown]
